FAERS Safety Report 20043923 (Version 6)
Quarter: 2022Q1

REPORT INFORMATION
  Report Type: Spontaneous
  Country: PL (occurrence: PL)
  Receive Date: 20211108
  Receipt Date: 20220228
  Transmission Date: 20220423
  Serious: Yes (Life-Threatening, Hospitalization, Disabling)
  Sender: FDA-Public Use
  Company Number: PL-CELGENE-POL-20211101364

PATIENT
  Age: 86 Year
  Sex: Male

DRUGS (15)
  1. AZACITIDINE [Suspect]
     Active Substance: AZACITIDINE
     Indication: Acute myeloid leukaemia
     Route: 041
     Dates: start: 20210823
  2. AZACITIDINE [Suspect]
     Active Substance: AZACITIDINE
     Route: 058
     Dates: start: 20210823
  3. AZACITIDINE [Suspect]
     Active Substance: AZACITIDINE
     Route: 048
     Dates: start: 20210824
  4. AZACITIDINE [Suspect]
     Active Substance: AZACITIDINE
     Route: 048
     Dates: start: 20210825
  5. PEVONEDISTAT [Suspect]
     Active Substance: PEVONEDISTAT
     Indication: Acute myeloid leukaemia
     Route: 041
     Dates: start: 20210823
  6. PEVONEDISTAT [Suspect]
     Active Substance: PEVONEDISTAT
     Route: 058
     Dates: start: 20210823
  7. PEVONEDISTAT [Suspect]
     Active Substance: PEVONEDISTAT
     Route: 048
     Dates: start: 20210824
  8. PEVONEDISTAT [Suspect]
     Active Substance: PEVONEDISTAT
     Route: 048
     Dates: start: 20210825
  9. VENETOCLAX [Suspect]
     Active Substance: VENETOCLAX
     Indication: Acute myeloid leukaemia
     Route: 048
     Dates: start: 20210823
  10. VENETOCLAX [Suspect]
     Active Substance: VENETOCLAX
     Route: 058
     Dates: start: 20210823
  11. VENETOCLAX [Suspect]
     Active Substance: VENETOCLAX
     Route: 048
     Dates: start: 20210824
  12. VENETOCLAX [Suspect]
     Active Substance: VENETOCLAX
     Route: 048
     Dates: start: 20210825
  13. METFORMIN [Concomitant]
     Active Substance: METFORMIN HYDROCHLORIDE
     Indication: Type 2 diabetes mellitus
     Route: 065
  14. PANTOPRAZOLE SODIUM [Concomitant]
     Active Substance: PANTOPRAZOLE SODIUM
     Indication: Prophylaxis
     Route: 065
  15. ALLOPURINOL [Concomitant]
     Active Substance: ALLOPURINOL
     Indication: Prophylaxis
     Route: 065

REACTIONS (2)
  - Anaemia [Recovered/Resolved]
  - Anaemia [Recovered/Resolved]

NARRATIVE: CASE EVENT DATE: 20211103
